FAERS Safety Report 21052785 (Version 1)
Quarter: 2022Q3

REPORT INFORMATION
  Report Type: Report from Study
  Country: US (occurrence: US)
  Receive Date: 20220707
  Receipt Date: 20220707
  Transmission Date: 20221026
  Serious: Yes (Other)
  Sender: FDA-Public Use
  Company Number: US-SUNOVION-2022SUN002004

PATIENT
  Age: 40 Year
  Sex: Female

DRUGS (1)
  1. KYNMOBI [Suspect]
     Active Substance: APOMORPHINE HYDROCHLORIDE
     Dosage: 15 MG
     Route: 060
     Dates: start: 20220630

REACTIONS (8)
  - Depressed level of consciousness [Unknown]
  - Malaise [Unknown]
  - Dysstasia [Unknown]
  - Yawning [Unknown]
  - Pallor [Unknown]
  - Cold sweat [Unknown]
  - Blood pressure increased [Unknown]
  - Somnolence [Unknown]

NARRATIVE: CASE EVENT DATE: 20220630
